FAERS Safety Report 4866919-2 (Version None)
Quarter: 2005Q4

REPORT INFORMATION
  Report Type: 
  Country: None (occurrence: None)
  Receive Date: 20051222
  Receipt Date: 20051212
  Transmission Date: 20060501
  Serious: Yes (Death, Hospitalization, Other)
  Sender: FDA-Public Use
  Company Number: 2005163471

PATIENT
  Sex: Male

DRUGS (3)
  1. VFEND [Suspect]
     Indication: CANDIDIASIS
     Dosage: 200 MG (200 MG 1 IN 1 D) INTRAVENOUS
     Route: 042
     Dates: start: 20051101, end: 20051101
  2. CORTICOSTEROID (CORTICOSTEROIDS) [Concomitant]
  3. ANTIBIOTICS (ANTIBIOTICS) [Concomitant]

REACTIONS (4)
  - CANDIDIASIS [None]
  - CONDITION AGGRAVATED [None]
  - HALLUCINATION, VISUAL [None]
  - THERAPY NON-RESPONDER [None]
